FAERS Safety Report 15250824 (Version 5)
Quarter: 2019Q4

REPORT INFORMATION
  Report Type: Report from Study
  Country: JP (occurrence: JP)
  Receive Date: 20180807
  Receipt Date: 20191225
  Transmission Date: 20200122
  Serious: Yes (Death, Hospitalization, Other)
  Sender: FDA-Public Use
  Company Number: PHJP2017JP005959

PATIENT
  Age: 56 Year
  Sex: Male
  Weight: 62 kg

DRUGS (8)
  1. JAKAVI TABLETS [Suspect]
     Active Substance: RUXOLITINIB
     Dosage: 5 MG, QD
     Route: 048
     Dates: start: 20170726, end: 20171017
  2. CEFEPIME DIHYDROCHLORIDE FOR INTRAVENOUS INJECTION [Suspect]
     Active Substance: CEFEPIME HYDROCHLORIDE
     Indication: OSTEOMYELITIS
     Dosage: 2 G, UNK
     Route: 065
     Dates: start: 20170119, end: 20170129
  3. JAKAVI TABLETS [Suspect]
     Active Substance: RUXOLITINIB
     Dosage: 5 MG, BID
     Route: 048
     Dates: start: 20171018, end: 20171122
  4. JAKAVI TABLETS [Suspect]
     Active Substance: RUXOLITINIB
     Dosage: 5 MG, BID
     Route: 048
     Dates: start: 20171220, end: 20180116
  5. VANCOMYCIN [Suspect]
     Active Substance: VANCOMYCIN
     Indication: DRUG ERUPTION
     Dosage: 0.6 G, UNK
     Route: 041
     Dates: start: 20170130
  6. JAKAVI TABLETS [Suspect]
     Active Substance: RUXOLITINIB
     Indication: POLYCYTHAEMIA VERA
     Dosage: 10 MG, BID
     Route: 048
     Dates: start: 20151007, end: 20160106
  7. JAKAVI TABLETS [Suspect]
     Active Substance: RUXOLITINIB
     Dosage: 5 MG, BID
     Route: 048
     Dates: start: 20160107, end: 20160308
  8. JAKAVI TABLETS [Suspect]
     Active Substance: RUXOLITINIB
     Dosage: 10 MG, BID
     Route: 048
     Dates: start: 20160309, end: 20170117

REACTIONS (35)
  - Polycythaemia vera [Fatal]
  - Chronic kidney disease [Recovering/Resolving]
  - Cyst rupture [Unknown]
  - Hepatic function abnormal [Recovered/Resolved]
  - Altered state of consciousness [Unknown]
  - Restlessness [Unknown]
  - Cytopenia [Recovered/Resolved]
  - Device breakage [Recovering/Resolving]
  - Acute kidney injury [Unknown]
  - Inflammation [Unknown]
  - Altered state of consciousness [Recovered/Resolved]
  - Rash [Unknown]
  - General physical health deterioration [Fatal]
  - Mesenteric vein thrombosis [Fatal]
  - Portal vein thrombosis [Unknown]
  - Influenza [None]
  - Joint swelling [Unknown]
  - Encephalitis [Recovered/Resolved]
  - Disorganised speech [Unknown]
  - Blood urea increased [Unknown]
  - Diarrhoea [Unknown]
  - Splenic vein thrombosis [Fatal]
  - Visual impairment [Unknown]
  - Pyrexia [Unknown]
  - Lymphocyte count decreased [Unknown]
  - Infective spondylitis [Recovered/Resolved]
  - Meningitis [Recovered/Resolved]
  - Arthritis bacterial [Recovering/Resolving]
  - Arthralgia [Unknown]
  - Renal impairment [Recovered/Resolved]
  - Blood uric acid increased [Unknown]
  - Blood pressure systolic increased [Unknown]
  - Pain [Unknown]
  - Bacteraemia [Recovered/Resolved]
  - Drug eruption [Recovering/Resolving]

NARRATIVE: CASE EVENT DATE: 20151221
